FAERS Safety Report 8576558 (Version 2)
Quarter: 2014Q1

REPORT INFORMATION
  Report Type: Spontaneous
  Country: US (occurrence: None)
  Receive Date: 20120323
  Receipt Date: 20130305
  Transmission Date: 20141002
  Serious: Yes (Hospitalization, Other)
  Sender: FDA-Public Use
  Company Number: 163-21880-11112958

PATIENT
  Age: 85 Year
  Sex: Male

DRUGS (3)
  1. REVLIMID [Suspect]
     Indication: PLASMA CELL MYELOMA
     Dosage: 15 MG, QD X 21 DAYS, THEN 7 DAYS OFF, PO
     Route: 048
     Dates: start: 20111024
  2. METOPROLOL [Concomitant]
  3. REMERON [Concomitant]

REACTIONS (3)
  - Pneumonia pneumococcal [None]
  - White blood cell count decreased [None]
  - Neutropenia [None]
